FAERS Safety Report 4690224-0 (Version None)
Quarter: 2005Q2

REPORT INFORMATION
  Report Type: 
  Country: None (occurrence: None)
  Receive Date: 20050614
  Receipt Date: 20050614
  Transmission Date: 20051028
  Serious: Yes (Hospitalization)
  Sender: FDA-Public Use
  Company Number: None

PATIENT
  Sex: Female
  Weight: 117.4816 kg

DRUGS (6)
  1. REMICADE [Suspect]
     Indication: CROHN'S DISEASE
     Dosage: 635 MG IV
     Route: 042
     Dates: start: 20050302
  2. SOLU-MEDROL [Concomitant]
  3. DIOVAN [Concomitant]
  4. ASACOL [Concomitant]
  5. PROTONIX [Concomitant]
  6. THYROID TAB [Concomitant]

REACTIONS (5)
  - ABSCESS [None]
  - CRYPTOCOCCOSIS [None]
  - SPINAL DISORDER [None]
  - STAPHYLOCOCCAL SEPSIS [None]
  - URINARY TRACT INFECTION [None]
